FAERS Safety Report 7779671-8 (Version None)
Quarter: 2011Q3

REPORT INFORMATION
  Report Type: 
  Country: None (occurrence: None)
  Receive Date: 20110927
  Receipt Date: 20110131
  Transmission Date: 20111222
  Serious: Yes (Hospitalization, Other)
  Sender: FDA-Public Use
  Company Number: US-BAYER-201021928NA

PATIENT
  Age: 42 Year
  Sex: Female
  Weight: 107 kg

DRUGS (20)
  1. METOPROLOL TARTRATE [Concomitant]
     Indication: BLOOD PRESSURE ABNORMAL
     Dosage: 50 MG, QD
  2. CYTOTEC [Concomitant]
     Indication: GASTRIC ULCER
     Dosage: 200 MCG/24HR, QD
     Dates: start: 20010101, end: 20080207
  3. METOPROLOL TARTRATE [Concomitant]
     Indication: CARDIAC DISORDER
     Dosage: 25 MG, BID
     Route: 048
     Dates: start: 20070417, end: 20090123
  4. LYRICA [Concomitant]
     Indication: FIBROMYALGIA
     Dosage: UNK
     Route: 048
     Dates: start: 20071129, end: 20090608
  5. CELEXA [Concomitant]
     Indication: FIBROMYALGIA
     Dosage: 20 MG, QD
     Route: 048
     Dates: start: 20070401, end: 20090601
  6. ROCEPHIN [Concomitant]
  7. ALLEGRA [Concomitant]
     Indication: MULTIPLE ALLERGIES
     Dosage: 180 MG, QD
     Dates: start: 20070212, end: 20080422
  8. DILAUDID [Concomitant]
     Indication: PAIN
     Dosage: UNK
     Dates: start: 20090201, end: 20090201
  9. YAZ [Suspect]
     Indication: PRODUCT USED FOR UNKNOWN INDICATION
     Dosage: UNK
     Route: 048
     Dates: start: 20060801, end: 20080709
  10. TRAMADOL [Concomitant]
     Indication: ANALGESIC THERAPY
     Dosage: 50 MG, QID
     Dates: start: 20000101
  11. MUCINEX [Concomitant]
     Dosage: 600 MG, BID
  12. ANTIBIOTICS [Concomitant]
     Dosage: UNK
  13. LOPRESSOR [Concomitant]
     Indication: HYPERTENSION
  14. VALIUM [Concomitant]
     Indication: MUSCLE SPASMS
     Dosage: 2.5 MG, HS
     Route: 048
     Dates: start: 20070201
  15. SYNTHROID [Concomitant]
     Indication: HYPOTHYROIDISM
     Dosage: 0.175 MG, QD
     Dates: start: 20010101
  16. AMITRIPTYLINE HCL [Concomitant]
     Indication: DEPRESSION
  17. OXYCODONE HCL AND ACETAMINOPHEN [Concomitant]
     Indication: FIBROMYALGIA
     Dosage: UNK
     Dates: start: 20070307, end: 20081031
  18. ELAVIL [Concomitant]
  19. DICLOFENAC SODIUM [Concomitant]
     Indication: FIBROMYALGIA
     Dosage: UNK
     Route: 048
     Dates: start: 20010101, end: 20080201
  20. AMITRIPTYLINE HCL [Concomitant]
     Indication: PAIN
     Dosage: 20 MG, HS
     Dates: start: 20070810, end: 20080207

REACTIONS (12)
  - ABDOMINAL PAIN [None]
  - GALLBLADDER DISORDER [None]
  - INTESTINAL INFARCTION [None]
  - PAIN IN EXTREMITY [None]
  - MESENTERIC VEIN THROMBOSIS [None]
  - CHOLECYSTITIS CHRONIC [None]
  - PORTAL VEIN THROMBOSIS [None]
  - SPLENIC VEIN THROMBOSIS [None]
  - OEDEMA PERIPHERAL [None]
  - DEEP VEIN THROMBOSIS [None]
  - VENOUS INJURY [None]
  - SPLENIC INFARCTION [None]
